FAERS Safety Report 6369025 (Version 4)
Quarter: 2013Q1

REPORT INFORMATION
  Report Type: Spontaneous
  Country: US (occurrence: US)
  Receive Date: 20070727
  Receipt Date: 20130219
  Transmission Date: 20140127
  Serious: Yes (Hospitalization, Other)
  Sender: FDA-Public Use
  Company Number: US-ELI_LILLY_AND_COMPANY-US200707004703

PATIENT
  Age: 69 Year
  Sex: Male

DRUGS (3)
  1. HUMATROPE [Suspect]
     Indication: PITUITARY TUMOUR REMOVAL
     Dates: start: 2000
  2. HUMATROPE [Suspect]
     Dosage: 0.4 MG, UNK
  3. ANDROGEL [Concomitant]

REACTIONS (6)
  - Prostate cancer [Unknown]
  - Pituitary tumour [Recovered/Resolved]
  - Vascular graft [Recovering/Resolving]
  - Eyelid function disorder [Recovered/Resolved]
  - Fatigue [Recovering/Resolving]
  - Asthenia [Recovering/Resolving]
